FAERS Safety Report 10175723 (Version 1)
Quarter: 2014Q2

REPORT INFORMATION
  Report Type: Report from Study
  Country: FR (occurrence: FR)
  Receive Date: 20140516
  Receipt Date: 20140516
  Transmission Date: 20141212
  Serious: Yes (Hospitalization)
  Sender: FDA-Public Use
  Company Number: FR-ROCHE-1399834

PATIENT
  Sex: Female

DRUGS (6)
  1. RITUXIMAB [Suspect]
     Indication: RHEUMATOID ARTHRITIS
     Route: 041
     Dates: start: 20060711
  2. RITUXIMAB [Suspect]
     Route: 041
     Dates: start: 20060725
  3. RITUXIMAB [Suspect]
     Route: 041
     Dates: start: 20080205
  4. RITUXIMAB [Suspect]
     Route: 041
     Dates: start: 20080220, end: 20080903
  5. IMUREL [Concomitant]
     Route: 065
     Dates: start: 20070319
  6. CORTANCYL [Concomitant]
     Route: 065

REACTIONS (4)
  - Femur fracture [Recovering/Resolving]
  - Arthralgia [Not Recovered/Not Resolved]
  - Gastrooesophageal reflux disease [Unknown]
  - Sleep apnoea syndrome [Recovering/Resolving]
